FAERS Safety Report 8510783-7 (Version None)
Quarter: 2012Q3

REPORT INFORMATION
  Report Type: 
  Country: None (occurrence: None)
  Receive Date: 20120716
  Receipt Date: 20120710
  Transmission Date: 20120928
  Serious: No
  Sender: FDA-Public Use
  Company Number: US-PFIZER INC-2012165788

PATIENT
  Sex: Female
  Weight: 89.3 kg

DRUGS (11)
  1. LYRICA [Suspect]
     Indication: FIBROMYALGIA
     Dosage: 150 MG, 3X/DAY
     Route: 048
  2. CARISOPRODOL [Concomitant]
     Dosage: 350 MG, 4X/DAY
  3. LASIX [Concomitant]
     Indication: OEDEMA PERIPHERAL
     Dosage: UNK
  4. SPIRIVA [Concomitant]
     Indication: ASTHMA
     Dosage: UNK
  5. NEURONTIN [Suspect]
     Indication: FIBROMYALGIA
     Dosage: UNK, 4X/DAY
     Route: 048
  6. TYLENOL W/ CODEINE NO. 3 [Concomitant]
     Dosage: 300/30 MG, AS NEEDED
  7. CLONAZEPAM [Concomitant]
  8. ALBUTEROL [Concomitant]
     Indication: ASTHMA
     Dosage: UNK
  9. CLONAZEPAM [Concomitant]
     Indication: SLEEP DISORDER
     Dosage: 1 MG, 1X/DAY
  10. CLONAZEPAM [Concomitant]
  11. LASIX [Concomitant]
     Indication: PAIN IN EXTREMITY

REACTIONS (2)
  - ANAEMIA [None]
  - WEIGHT INCREASED [None]
